FAERS Safety Report 5954850-0 (Version None)
Quarter: 2008Q4

REPORT INFORMATION
  Report Type: 
  Country: None (occurrence: None)
  Receive Date: 20081113
  Receipt Date: 20081113
  Transmission Date: 20090506
  Serious: Yes (Life-Threatening)
  Sender: FDA-Public Use
  Company Number: None

PATIENT
  Age: 59 Year
  Sex: Male
  Weight: 88.4514 kg

DRUGS (1)
  1. LOZOL [Suspect]

REACTIONS (3)
  - ANGIOEDEMA [None]
  - ASTHMA [None]
  - DRUG HYPERSENSITIVITY [None]
